FAERS Safety Report 21111467 (Version 2)
Quarter: 2022Q3

REPORT INFORMATION
  Report Type: Report from Study
  Country: US (occurrence: US)
  Receive Date: 20220721
  Receipt Date: 20220915
  Transmission Date: 20221026
  Serious: Yes (Other)
  Sender: FDA-Public Use
  Company Number: US-BRISTOL-MYERS SQUIBB COMPANY-2022-033697

PATIENT
  Age: 65 Year
  Sex: Female
  Weight: 67.58 kg

DRUGS (4)
  1. REVLIMID [Suspect]
     Active Substance: LENALIDOMIDE
     Indication: Plasma cell myeloma
     Route: 048
     Dates: start: 20200801
  2. REVLIMID [Suspect]
     Active Substance: LENALIDOMIDE
     Dosage: 5 MG, DAILY
     Route: 048
  3. REVLIMID [Suspect]
     Active Substance: LENALIDOMIDE
     Dosage: DAILY FOR 21 DOSES
     Route: 048
     Dates: start: 20200801
  4. DEXAMETHASONE [Concomitant]
     Active Substance: DEXAMETHASONE
     Indication: Product used for unknown indication
     Route: 065

REACTIONS (9)
  - Paraesthesia [Unknown]
  - Nasopharyngitis [Unknown]
  - Illness [Unknown]
  - Insomnia [Unknown]
  - Pain [Unknown]
  - Cough [Unknown]
  - Pulmonary congestion [Unknown]
  - Frostbite [Unknown]
  - Burning sensation [Unknown]

NARRATIVE: CASE EVENT DATE: 20220501
